FAERS Safety Report 7460772-9 (Version None)
Quarter: 2011Q2

REPORT INFORMATION
  Report Type: 
  Country: None (occurrence: None)
  Receive Date: 20110505
  Receipt Date: 20110421
  Transmission Date: 20111010
  Serious: Yes (Other)
  Sender: FDA-Public Use
  Company Number: PHEH2010US03477

PATIENT
  Sex: Female

DRUGS (41)
  1. ZELNORM [Suspect]
     Dosage: UNK
     Dates: start: 20060101
  2. METFORMIN [Concomitant]
  3. DOXEPIN [Concomitant]
  4. WELLBUTRIN [Concomitant]
  5. LOTREL [Concomitant]
  6. METOPROLOL SUCCINATE [Concomitant]
  7. CRESTOR [Concomitant]
     Dosage: UNK
  8. CALCIUM [Concomitant]
  9. PROSOM [Concomitant]
  10. ULTRAM [Concomitant]
     Dosage: UNK
  11. BENICAR [Concomitant]
  12. DARVOCET-N 50 [Concomitant]
  13. NORFLEX [Concomitant]
  14. JANUVIA [Concomitant]
  15. NUBAIN [Concomitant]
  16. REMERON [Concomitant]
  17. ELAVIL [Concomitant]
  18. DEMEROL [Concomitant]
  19. MORPHINE [Concomitant]
  20. ZYPREXA [Concomitant]
  21. TORADOL [Concomitant]
     Dosage: UNK
  22. BENICAR HCT [Concomitant]
     Dosage: UNK
  23. LIPITOR [Concomitant]
  24. AMBIEN [Concomitant]
  25. EXFORGE HCT [Concomitant]
     Dosage: UNK
  26. PROCARDIA [Concomitant]
  27. PREMARIN [Concomitant]
  28. MACRODANTIN [Concomitant]
  29. ACTOS [Concomitant]
  30. IMDUR [Concomitant]
  31. BONIVA [Concomitant]
  32. LIDOCAINE [Concomitant]
  33. MAGNESIUM OXIDE [Concomitant]
  34. LORCET-HD [Concomitant]
     Dosage: UNK
  35. ATENOLOL [Concomitant]
  36. K-LYTE/CL [Concomitant]
  37. GLUCOPHAGE [Concomitant]
  38. PROPOXYPHENE HYDROCHLORIDE [Concomitant]
     Dosage: UNK
  39. ELESTAT [Concomitant]
  40. LASIX [Concomitant]
  41. CARDIZEM [Concomitant]
     Dosage: UNK

REACTIONS (4)
  - INJURY [None]
  - ARTERIAL DISORDER [None]
  - CHEST PAIN [None]
  - ANGINA PECTORIS [None]
